FAERS Safety Report 5386294-7 (Version None)
Quarter: 2007Q3

REPORT INFORMATION
  Report Type: 
  Country: None (occurrence: None)
  Receive Date: 20070713
  Receipt Date: 20070703
  Transmission Date: 20080115
  Serious: Yes (Other)
  Sender: FDA-Public Use
  Company Number: PHBS2007BE11317

PATIENT
  Age: 70 Year
  Sex: Female

DRUGS (2)
  1. HYDROCHLOROTHIAZIDE [Suspect]
     Indication: HYPERTENSION
     Dosage: 12.5 MG/DAY
  2. BISOPROLOL [Suspect]
     Indication: HYPERTENSION
     Dosage: 5 MG/DAY

REACTIONS (27)
  - AGITATION [None]
  - BACK PAIN [None]
  - CARDIAC OUTPUT DECREASED [None]
  - CHILLS [None]
  - CONFUSIONAL STATE [None]
  - CYANOSIS [None]
  - DIZZINESS [None]
  - DYSPNOEA [None]
  - FAECAL INCONTINENCE [None]
  - FLUSHING [None]
  - HYPERHIDROSIS [None]
  - HYPERVENTILATION [None]
  - HYPOTENSION [None]
  - LUNG DISORDER [None]
  - MALAISE [None]
  - NAUSEA [None]
  - OXYGEN SATURATION DECREASED [None]
  - PERIPHERAL COLDNESS [None]
  - PULMONARY OEDEMA [None]
  - PULMONARY VASCULAR RESISTANCE ABNORMALITY [None]
  - PYREXIA [None]
  - SHOCK [None]
  - TACHYPNOEA [None]
  - URINARY INCONTINENCE [None]
  - VASCULAR RESISTANCE SYSTEMIC INCREASED [None]
  - VASOCONSTRICTION [None]
  - VOMITING [None]
